FAERS Safety Report 13520789 (Version 2)
Quarter: 2017Q2

REPORT INFORMATION
  Report Type: Report from Study
  Country: CN (occurrence: CN)
  Receive Date: 20170508
  Receipt Date: 20170515
  Transmission Date: 20170830
  Serious: Yes (Death)
  Sender: FDA-Public Use
  Company Number: CN-ROCHE-1931955

PATIENT

DRUGS (2)
  1. ALTEPLASE [Suspect]
     Active Substance: ALTEPLASE
     Dosage: MAXIMUM DOSE IS 90MG, FIRST 10% OF TOTAL THROUGH INTRAVENOUS INJECTION IN 1 MINUTE, THE REST 90% THR
     Route: 041
  2. ALTEPLASE [Suspect]
     Active Substance: ALTEPLASE
     Indication: CEREBRAL INFARCTION
     Dosage: MAXIMUM DOSE IS 90MG, FIRST 10% OF TOTAL THROUGH INTRAVENOUS INJECTION IN 1 MINUTE, THE REST 90% THR
     Route: 042

REACTIONS (1)
  - Cerebral haemorrhage [Fatal]
